FAERS Safety Report 10028470 (Version 1)
Quarter: 2014Q1

REPORT INFORMATION
  Report Type: Spontaneous
  Country: US (occurrence: None)
  Receive Date: 20140320
  Receipt Date: 20140320
  Transmission Date: 20141002
  Serious: Yes (Other)
  Sender: FDA-Public Use
  Company Number: AEGR000343

PATIENT
  Age: 52 Year
  Sex: Female
  Weight: 70.3 kg

DRUGS (7)
  1. JUXTAPID [Suspect]
     Indication: TYPE IIA HYPERLIPIDAEMIA
     Route: 048
     Dates: start: 20140110, end: 20140219
  2. VITAMIN D3 (COLECALCIFEROL) [Concomitant]
  3. LOVAZA (OMEGA-3-ACID ETHYL ESTER) [Concomitant]
  4. ZETIA (EZETIMIBE) [Concomitant]
  5. LETROZOLE (LETROZOLE) [Concomitant]
  6. PROLAMINE (CAFFEINE, PHENYLPROPANOLAMINE HYDROCHLORIDE) [Concomitant]
  7. PAROXETINE HCL (PAROXETINE HYDROCHLORIDE) [Concomitant]

REACTIONS (1)
  - Hepatic enzyme increased [None]
